FAERS Safety Report 5827490-1 (Version None)
Quarter: 2008Q3

REPORT INFORMATION
  Report Type: 
  Country: None (occurrence: None)
  Receive Date: 20080730
  Receipt Date: 20080722
  Transmission Date: 20090109
  Serious: Yes (Other)
  Sender: FDA-Public Use
  Company Number: US-JNJCH-2008019161

PATIENT
  Age: 14 Year
  Sex: Male

DRUGS (1)
  1. BENADRYL [Suspect]
     Indication: HYPERSENSITIVITY
     Dosage: TEXT:4 TEASPOONS ONE TIME
     Route: 048
     Dates: start: 20080722, end: 20080722

REACTIONS (6)
  - EXPIRED DRUG ADMINISTERED [None]
  - LIP SWELLING [None]
  - OBSTRUCTIVE AIRWAYS DISORDER [None]
  - PRURITUS GENERALISED [None]
  - THROAT TIGHTNESS [None]
  - URTICARIA [None]
